FAERS Safety Report 9734189 (Version 2)
Quarter: 2013Q4

REPORT INFORMATION
  Report Type: Spontaneous
  Country: US (occurrence: US)
  Receive Date: 20131205
  Receipt Date: 20131220
  Transmission Date: 20140711
  Serious: Yes (Other)
  Sender: FDA-Public Use
  Company Number: US-GILEAD-2013-0089166

PATIENT
  Age: 66 Year
  Sex: Female

DRUGS (1)
  1. RANEXA [Suspect]
     Indication: ANGINA PECTORIS
     Dosage: 500 MG, UNK
     Route: 048

REACTIONS (4)
  - Colon operation [Recovering/Resolving]
  - Pyrexia [Unknown]
  - Chills [Unknown]
  - Malaise [Unknown]
